FAERS Safety Report 20707241 (Version 1)
Quarter: 2022Q2

REPORT INFORMATION
  Report Type: Report from Study
  Country: CA (occurrence: CA)
  Receive Date: 20220413
  Receipt Date: 20220413
  Transmission Date: 20220720
  Serious: Yes (Death)
  Sender: FDA-Public Use
  Company Number: CA-MYLANLABS-2021M1043151

PATIENT
  Sex: Female

DRUGS (2)
  1. CLOZAPINE [Suspect]
     Active Substance: CLOZAPINE
     Indication: Behaviour disorder
     Dosage: UNK
     Dates: end: 20210705
  2. CLOZAPINE [Suspect]
     Active Substance: CLOZAPINE
     Indication: Dementia

REACTIONS (2)
  - Parkinson^s disease [Fatal]
  - Off label use [Unknown]
